FAERS Safety Report 21634423 (Version 1)
Quarter: 2022Q4

REPORT INFORMATION
  Report Type: Spontaneous
  Country: CN (occurrence: CN)
  Receive Date: 20221123
  Receipt Date: 20221123
  Transmission Date: 20230112
  Serious: Yes (Other)
  Sender: FDA-Public Use
  Company Number: CN-PFIZER INC-PV202200107104

PATIENT
  Age: 58 Year
  Sex: Female
  Weight: 62 kg

DRUGS (3)
  1. SOLU-MEDROL [Suspect]
     Active Substance: METHYLPREDNISOLONE SODIUM SUCCINATE
     Indication: Therapeutic procedure
     Dosage: 1000 MG, 1X/DAY
     Route: 041
     Dates: start: 20221027, end: 20221029
  2. SOLU-MEDROL [Suspect]
     Active Substance: METHYLPREDNISOLONE SODIUM SUCCINATE
     Indication: Demyelination
     Dosage: 500 MG, 1X/DAY
     Route: 041
     Dates: start: 20221030, end: 20221101
  3. SOLU-MEDROL [Suspect]
     Active Substance: METHYLPREDNISOLONE SODIUM SUCCINATE
     Indication: Mass
     Dosage: 250 MG, 1X/DAY
     Route: 041
     Dates: start: 20221102, end: 20221104

REACTIONS (4)
  - Immunosuppression [Recovering/Resolving]
  - Herpes virus infection [Recovering/Resolving]
  - Pruritus [Recovering/Resolving]
  - Off label use [Unknown]

NARRATIVE: CASE EVENT DATE: 20221102
